FAERS Safety Report 5894696-5 (Version None)
Quarter: 2008Q3

REPORT INFORMATION
  Report Type: 
  Country: None (occurrence: None)
  Receive Date: 20080924
  Receipt Date: 20080415
  Transmission Date: 20090109
  Serious: No
  Sender: FDA-Public Use
  Company Number: US-ASTRAZENECA-2008UW09342

PATIENT

DRUGS (2)
  1. SEROQUEL [Suspect]
     Route: 048
  2. MANY DRUGS [Concomitant]

REACTIONS (1)
  - MUSCULAR WEAKNESS [None]
